FAERS Safety Report 7441908-2 (Version None)
Quarter: 2011Q2

REPORT INFORMATION
  Report Type: 
  Country: None (occurrence: None)
  Receive Date: 20110419
  Receipt Date: 20110412
  Transmission Date: 20111010
  Serious: Yes (Hospitalization)
  Sender: FDA-Public Use
  Company Number: WAES 1104FRA00077

PATIENT
  Age: 68 Year
  Sex: Male

DRUGS (1)
  1. ZOLINZA [Suspect]
     Indication: MYELODYSPLASTIC SYNDROME
     Dosage: 100 MG/DAILY/PO
     Route: 048
     Dates: start: 20110215, end: 20110228

REACTIONS (4)
  - THROMBOCYTOPENIA [None]
  - ANAEMIA [None]
  - GENERAL PHYSICAL HEALTH DETERIORATION [None]
  - HYPERTHERMIA [None]
